FAERS Safety Report 13284531 (Version 1)
Quarter: 2017Q1

REPORT INFORMATION
  Report Type: Spontaneous
  Country: CA (occurrence: CA)
  Receive Date: 20170301
  Receipt Date: 20170301
  Transmission Date: 20170428
  Serious: Yes (Disabling)
  Sender: FDA-Public Use
  Company Number: CA-TEVA-742856ACC

PATIENT
  Sex: Female

DRUGS (1)
  1. RATIO-PREDNISOLONE [Suspect]
     Active Substance: PREDNISOLONE
     Route: 047

REACTIONS (2)
  - Ocular hyperaemia [Unknown]
  - Photophobia [Unknown]
